FAERS Safety Report 11276566 (Version 1)
Quarter: 2015Q3

REPORT INFORMATION
  Report Type: Spontaneous
  Country: US (occurrence: None)
  Receive Date: 20150715
  Receipt Date: 20150715
  Transmission Date: 20151125
  Serious: Yes (Hospitalization)
  Sender: FDA-Public Use
  Company Number: None

PATIENT
  Sex: Female
  Weight: 71.67 kg

DRUGS (3)
  1. FANAPT [Suspect]
     Active Substance: ILOPERIDONE
     Indication: PSYCHOTIC DISORDER
     Dosage: 1 PILL AM AND 1 PILL PM
     Route: 048
     Dates: start: 20150609, end: 20150714
  2. FANAPT [Suspect]
     Active Substance: ILOPERIDONE
     Indication: AGGRESSION
     Dosage: 1 PILL AM AND 1 PILL PM
     Route: 048
     Dates: start: 20150609, end: 20150714
  3. MELATONIN [Concomitant]
     Active Substance: MELATONIN

REACTIONS (4)
  - Abnormal behaviour [None]
  - Sedation [None]
  - Hypersomnia [None]
  - Overdose [None]

NARRATIVE: CASE EVENT DATE: 20150707
